FAERS Safety Report 5493576-7 (Version None)
Quarter: 2007Q4

REPORT INFORMATION
  Report Type: 
  Country: None (occurrence: None)
  Receive Date: 20071023
  Receipt Date: 20071016
  Transmission Date: 20080405
  Serious: Yes (Other)
  Sender: FDA-Public Use
  Company Number: DK-AVENTIS-200717364GDDC

PATIENT
  Age: 8 Year
  Sex: Male

DRUGS (1)
  1. MINIRIN [Suspect]
     Route: 048
     Dates: start: 20070605, end: 20070609

REACTIONS (2)
  - ARRHYTHMIA [None]
  - EXTRASYSTOLES [None]
